FAERS Safety Report 25051408 (Version 1)
Quarter: 2025Q1

REPORT INFORMATION
  Report Type: Spontaneous
  Country: GR (occurrence: GR)
  Receive Date: 20250307
  Receipt Date: 20250307
  Transmission Date: 20250409
  Serious: Yes (Other)
  Sender: EMD SERONO INC
  Company Number: GR-Merck Healthcare KGaA-2025010663

PATIENT
  Sex: Male

DRUGS (4)
  1. MAVENCLAD [Suspect]
     Active Substance: CLADRIBINE
     Indication: Multiple sclerosis
  2. MAVENCLAD [Suspect]
     Active Substance: CLADRIBINE
  3. MAVENCLAD [Suspect]
     Active Substance: CLADRIBINE
  4. MAVENCLAD [Suspect]
     Active Substance: CLADRIBINE

REACTIONS (2)
  - Cataract nuclear [Not Recovered/Not Resolved]
  - Macular degeneration [Unknown]
